FAERS Safety Report 15246437 (Version 3)
Quarter: 2018Q4

REPORT INFORMATION
  Report Type: Spontaneous
  Country: HU (occurrence: HU)
  Receive Date: 20180806
  Receipt Date: 20181015
  Transmission Date: 20190204
  Serious: Yes (Other)
  Sender: FDA-Public Use
  Company Number: HU-PFIZER INC-2018311443

PATIENT
  Age: 44 Year
  Sex: Male

DRUGS (8)
  1. CARVEDILOL. [Suspect]
     Active Substance: CARVEDILOL
     Dosage: 12.6 MG, 2X/DAY (TWICE DAILY)
  2. UBIDECARENONE [Concomitant]
     Active Substance: UBIDECARENONE
     Dosage: 100 MG, 2X/DAY
  3. WARFARIN [Concomitant]
     Active Substance: WARFARIN
     Dosage: UNK, DAILY UNK (ALTERNATION OF 5-7.5 MG)
  4. RAMIPRIL. [Suspect]
     Active Substance: RAMIPRIL
     Dosage: 5 MG, TWO TIMES A DAY
  5. ALLOPURINOL. [Suspect]
     Active Substance: ALLOPURINOL
     Dosage: 100 MG, 2X/DAY
  6. SPIRONOLACTONE. [Concomitant]
     Active Substance: SPIRONOLACTONE
     Dosage: 25 MG, 2X/DAY
  7. FUROSEMIDE. [Concomitant]
     Active Substance: FUROSEMIDE
     Dosage: 40 MG, UNK
  8. POTASSIUM [Concomitant]
     Active Substance: POTASSIUM
     Dosage: 600 MG, 1X/DAY

REACTIONS (15)
  - Hydrothorax [Unknown]
  - Inspiratory capacity decreased [Unknown]
  - Cough [Unknown]
  - Upper respiratory tract infection [Unknown]
  - Tricuspid valve incompetence [Recovering/Resolving]
  - Tachycardia [Unknown]
  - Oedema peripheral [Recovered/Resolved]
  - General physical health deterioration [Unknown]
  - Ejection fraction decreased [Recovering/Resolving]
  - Dyspnoea [Unknown]
  - Ventricular internal diameter abnormal [Recovering/Resolving]
  - Atrial tachycardia [Unknown]
  - N-terminal prohormone brain natriuretic peptide increased [Recovered/Resolved]
  - Mitral valve incompetence [Recovering/Resolving]
  - Tachycardia induced cardiomyopathy [Unknown]

NARRATIVE: CASE EVENT DATE: 201409
